FAERS Safety Report 17866943 (Version 2)
Quarter: 2020Q2

REPORT INFORMATION
  Report Type: Spontaneous
  Country: BR (occurrence: BR)
  Receive Date: 20200605
  Receipt Date: 20200611
  Transmission Date: 20200714
  Serious: Yes (Hospitalization, Other)
  Sender: FDA-Public Use
  Company Number: BR-AMGEN-BRASP2020087362

PATIENT
  Age: 5 Year
  Sex: Male
  Weight: 22 kg

DRUGS (2)
  1. BLINCYTO [Suspect]
     Active Substance: BLINATUMOMAB
     Indication: PRODUCT USED FOR UNKNOWN INDICATION
     Dosage: 5 MICROGRAM/M2, QD
     Route: 065
     Dates: start: 20200504, end: 202005
  2. BLINCYTO [Suspect]
     Active Substance: BLINATUMOMAB
     Dosage: 5 MICROGRAM/M2, QD
     Route: 065
     Dates: start: 20200511

REACTIONS (3)
  - Off label use [Unknown]
  - Candida infection [Unknown]
  - Hepatotoxicity [Recovering/Resolving]

NARRATIVE: CASE EVENT DATE: 2020
